FAERS Safety Report 10098406 (Version 2)
Quarter: 2014Q2

REPORT INFORMATION
  Report Type: Spontaneous
  Country: DE (occurrence: DE)
  Receive Date: 20140423
  Receipt Date: 20140423
  Transmission Date: 20141212
  Serious: Yes (Life-Threatening, Hospitalization)
  Sender: FDA-Public Use
  Company Number: DE-JNJFOC-20140406652

PATIENT
  Age: 75 Year
  Sex: Female
  Weight: 48 kg

DRUGS (7)
  1. XARELTO [Suspect]
     Indication: CEREBROVASCULAR ACCIDENT PROPHYLAXIS
     Route: 048
     Dates: start: 201305, end: 20140315
  2. XARELTO [Suspect]
     Indication: ATRIAL FIBRILLATION
     Route: 048
     Dates: start: 201305, end: 20140315
  3. PROTELOS [Concomitant]
     Indication: OSTEOPOROSIS
     Route: 048
     Dates: start: 201111, end: 201403
  4. OXYCODON [Concomitant]
     Indication: BONE PAIN
     Route: 048
     Dates: start: 201001, end: 201403
  5. SAROTEN [Concomitant]
     Route: 048
     Dates: start: 201003, end: 20140315
  6. MYDOCALM (FORMULATION UNKNOWN) [Concomitant]
     Indication: BONE PAIN
     Route: 048
     Dates: start: 201001, end: 201403
  7. VIGANTOLETTEN [Concomitant]
     Indication: OSTEOPOROSIS
     Route: 048
     Dates: start: 201111, end: 20140315

REACTIONS (2)
  - Haemorrhagic stroke [Unknown]
  - Headache [Unknown]
